FAERS Safety Report 21115633 (Version 3)
Quarter: 2022Q4

REPORT INFORMATION
  Report Type: Spontaneous
  Country: US (occurrence: US)
  Receive Date: 20220721
  Receipt Date: 20221012
  Transmission Date: 20230113
  Serious: Yes (Hospitalization)
  Sender: FDA-Public Use
  Company Number: US-SA-SAC20220715001820

PATIENT
  Age: 55 Year
  Sex: Female

DRUGS (1)
  1. KEVZARA [Suspect]
     Active Substance: SARILUMAB
     Indication: Rheumatoid arthritis
     Dosage: 200 MG, QOW
     Route: 058
     Dates: start: 20220601, end: 2022

REACTIONS (12)
  - Dyspnoea [Unknown]
  - Lip swelling [Unknown]
  - Paraesthesia oral [Unknown]
  - Constipation [Unknown]
  - Myalgia [Unknown]
  - Pain in extremity [Unknown]
  - Ocular hyperaemia [Unknown]
  - Epistaxis [Unknown]
  - Mouth ulceration [Unknown]
  - Condition aggravated [Unknown]
  - Dizziness [Unknown]
  - Periorbital swelling [Unknown]

NARRATIVE: CASE EVENT DATE: 20220101
